FAERS Safety Report 5849078-9 (Version None)
Quarter: 2008Q3

REPORT INFORMATION
  Report Type: 
  Country: None (occurrence: None)
  Receive Date: 20080819
  Receipt Date: 20080811
  Transmission Date: 20090109
  Serious: Yes (Hospitalization)
  Sender: FDA-Public Use
  Company Number: PHHY2008DE18196

PATIENT

DRUGS (3)
  1. MYFORTIC [Suspect]
     Indication: SYSTEMIC LUPUS ERYTHEMATOSUS
     Dosage: 1440 MG, QD
     Route: 048
     Dates: start: 20080101, end: 20080801
  2. MYFORTIC [Suspect]
     Dosage: 1440 MG, QD
     Route: 048
     Dates: start: 20080801
  3. PREDNISOLONE [Suspect]
     Indication: SYSTEMIC LUPUS ERYTHEMATOSUS
     Dosage: UNK
     Route: 048

REACTIONS (2)
  - OEDEMA [None]
  - PARAESTHESIA [None]
